FAERS Safety Report 7909824-7 (Version None)
Quarter: 2011Q4

REPORT INFORMATION
  Report Type: 
  Country: None (occurrence: None)
  Receive Date: 20111111
  Receipt Date: 20111108
  Transmission Date: 20120403
  Serious: Yes (Disabling)
  Sender: FDA-Public Use
  Company Number: IT-MERCK-1111ITA00013

PATIENT
  Age: 73 Year
  Sex: Female

DRUGS (6)
  1. FOSAMAX [Suspect]
     Route: 048
     Dates: start: 20070101, end: 20080101
  2. METHIMAZOLE [Concomitant]
     Route: 065
  3. HYDROCHLOROTHIAZIDE AND TELMISARTAN [Concomitant]
     Route: 065
  4. OMEPRAZOLE SODIUM [Concomitant]
     Route: 065
  5. CLODRONATE DISODIUM [Suspect]
     Route: 030
     Dates: start: 20080102, end: 20100324
  6. ATENOLOL [Concomitant]
     Route: 065

REACTIONS (1)
  - OSTEONECROSIS [None]
